FAERS Safety Report 9678483 (Version 1)
Quarter: 2013Q4

REPORT INFORMATION
  Report Type: Report from Study
  Country: US (occurrence: US)
  Receive Date: 20131108
  Receipt Date: 20131108
  Transmission Date: 20140711
  Serious: Yes (Other)
  Sender: FDA-Public Use
  Company Number: US-ROCHE-1299338

PATIENT
  Sex: Male

DRUGS (8)
  1. LUCENTIS [Suspect]
     Indication: RETINOPATHY
     Dosage: OC
     Route: 065
  2. LUCENTIS [Suspect]
     Indication: RETINAL VEIN OCCLUSION
  3. ERYTHROMYCIN OINTMENT [Concomitant]
     Dosage: OD PRN AFTER INJECTION
     Route: 065
  4. ASPIRIN [Concomitant]
     Route: 065
  5. PLAVIX [Concomitant]
  6. LOVASTATIN [Concomitant]
  7. LISINOPRIL [Concomitant]
  8. FOLIC ACID [Concomitant]

REACTIONS (11)
  - Vitreous haemorrhage [Unknown]
  - Retinal haemorrhage [Unknown]
  - Conjunctival haemorrhage [Unknown]
  - Vitreous floaters [Unknown]
  - Vision blurred [Unknown]
  - Arcus lipoides [Unknown]
  - Cataract nuclear [Unknown]
  - Macular pigmentation [Unknown]
  - Retinal neovascularisation [Unknown]
  - Retinal vascular disorder [Unknown]
  - Angiosclerosis [Unknown]
